FAERS Safety Report 5634695-1 (Version None)
Quarter: 2008Q1

REPORT INFORMATION
  Report Type: 
  Country: None (occurrence: None)
  Receive Date: 20080222
  Receipt Date: 20080218
  Transmission Date: 20080703
  Serious: Yes (Life-Threatening, Hospitalization)
  Sender: FDA-Public Use
  Company Number: FR-ASTRAZENECA-2008CG00267

PATIENT
  Age: 936 Month
  Sex: Male

DRUGS (7)
  1. HYTACAND [Suspect]
     Route: 048
     Dates: end: 20070901
  2. CORDARONE [Suspect]
     Route: 048
     Dates: start: 20020101, end: 20070817
  3. ICAZ [Suspect]
     Route: 048
     Dates: end: 20070901
  4. FUROSEMIDE [Suspect]
     Route: 048
     Dates: end: 20070907
  5. NEO-MERCAZOLE TAB [Concomitant]
     Route: 048
     Dates: start: 20070825, end: 20070901
  6. FLECAINIDE ACETATE [Concomitant]
     Route: 048
     Dates: start: 20070817, end: 20070905
  7. FLECAINIDE ACETATE [Concomitant]
     Route: 048
     Dates: start: 20070906

REACTIONS (2)
  - HYPERTHYROIDISM [None]
  - INTERSTITIAL LUNG DISEASE [None]
